FAERS Safety Report 20494157 (Version 1)
Quarter: 2022Q1

REPORT INFORMATION
  Report Type: Spontaneous
  Country: US (occurrence: US)
  Receive Date: 20220221
  Receipt Date: 20220221
  Transmission Date: 20220423
  Serious: Yes (Hospitalization, Other)
  Sender: FDA-Public Use
  Company Number: US-SA-SAC20220217001327

PATIENT
  Sex: Male

DRUGS (2)
  1. DUPIXENT [Suspect]
     Active Substance: DUPILUMAB
     Indication: Asthma
     Route: 058
  2. DUPIXENT [Suspect]
     Active Substance: DUPILUMAB
     Dosage: 300 MG

REACTIONS (6)
  - Atrial fibrillation [Unknown]
  - Eye swelling [Unknown]
  - Nasal polyps [Unknown]
  - Eye pruritus [Unknown]
  - Product use issue [Unknown]
  - Therapeutic response decreased [Unknown]
